FAERS Safety Report 15589015 (Version 3)
Quarter: 2019Q2

REPORT INFORMATION
  Report Type: Spontaneous
  Country: US (occurrence: US)
  Receive Date: 20181106
  Receipt Date: 20190529
  Transmission Date: 20190711
  Serious: Yes (Other)
  Sender: FDA-Public Use
  Company Number: US-PFIZER INC-2018444452

PATIENT
  Age: 61 Year
  Sex: Male
  Weight: 106 kg

DRUGS (8)
  1. LYRICA [Suspect]
     Active Substance: PREGABALIN
     Indication: NEUROPATHY PERIPHERAL
  2. LYRICA [Suspect]
     Active Substance: PREGABALIN
     Indication: PAIN
  3. LYRICA [Suspect]
     Active Substance: PREGABALIN
     Indication: ARTHRITIS
  4. OXYCONTIN [Concomitant]
     Active Substance: OXYCODONE HYDROCHLORIDE
     Dosage: UNK
     Dates: end: 20180212
  5. LYRICA [Suspect]
     Active Substance: PREGABALIN
     Indication: INTERVERTEBRAL DISC DEGENERATION
     Dosage: 100 MG, 3X/DAY (1 CAP PO TID)
     Route: 048
     Dates: start: 2018, end: 2018
  6. NALTREXONE [Concomitant]
     Active Substance: NALTREXONE
     Dosage: 9 MG, 1X/DAY
     Dates: start: 201804
  7. LYRICA [Suspect]
     Active Substance: PREGABALIN
     Indication: SPINAL CORD DISORDER
     Dosage: 150 MG, 3X/DAY
     Dates: start: 2018
  8. NALTREXONE [Concomitant]
     Active Substance: NALTREXONE
     Indication: PAIN
     Dosage: 9 MG, 1X/DAY

REACTIONS (3)
  - Cataract [Not Recovered/Not Resolved]
  - Intentional product use issue [Unknown]
  - Vision blurred [Not Recovered/Not Resolved]

NARRATIVE: CASE EVENT DATE: 2018
